FAERS Safety Report 7029927-1 (Version None)
Quarter: 2010Q4

REPORT INFORMATION
  Report Type: 
  Country: None (occurrence: None)
  Receive Date: 20101006
  Receipt Date: 20100924
  Transmission Date: 20110411
  Serious: Yes (Hospitalization)
  Sender: FDA-Public Use
  Company Number: KR-ELI_LILLY_AND_COMPANY-KR201009001255

PATIENT
  Sex: Female
  Weight: 48.5 kg

DRUGS (13)
  1. PEMETREXED [Suspect]
     Indication: NON-SMALL CELL LUNG CANCER METASTATIC
     Dosage: 500 MG/M2 ON DAY 1 EVERY 21 DAYS
     Route: 042
     Dates: start: 20100831
  2. CISPLATIN [Suspect]
     Indication: NON-SMALL CELL LUNG CANCER METASTATIC
     Dosage: 75 MG/M2 ON DAY 1 EVERY 21 DAYS. 25% REDUCTION
     Route: 042
     Dates: start: 20100831
  3. FOLIC ACID [Concomitant]
     Indication: PROPHYLAXIS
     Dates: start: 20100827
  4. VITAMIN B-12 [Concomitant]
     Indication: PROPHYLAXIS
     Dates: start: 20100831, end: 20100831
  5. DEXAMETHASONE [Concomitant]
     Indication: PROPHYLAXIS
     Dosage: UNK, UNK
     Dates: start: 20100830
  6. METOCLOPRAMIDE [Concomitant]
     Indication: NAUSEA
     Dosage: UNK, UNK
     Dates: start: 20100807, end: 20100910
  7. ONDANSETRON [Concomitant]
     Indication: NAUSEA
     Dosage: UNK, UNK
     Dates: start: 20100804, end: 20100913
  8. TERAZOSIN HCL [Concomitant]
     Indication: MICTURITION DISORDER
     Dosage: UNK, UNKNOWN
     Route: 065
     Dates: start: 20100820, end: 20100915
  9. GABAPENTIN [Concomitant]
     Indication: NEURALGIA
     Dosage: UNK, UNK
     Dates: start: 20100823, end: 20100915
  10. OXYCODONE [Concomitant]
     Indication: PAIN
     Dates: start: 20100819
  11. ALGINIC ACID [Concomitant]
     Indication: PROPHYLAXIS AGAINST GASTROINTESTINAL ULCER
     Dosage: UNK, UNK
     Dates: start: 20100904, end: 20100910
  12. LORAZEPAM [Concomitant]
     Indication: SEDATION
     Dosage: UNK, UNK
     Dates: start: 20100904, end: 20100908
  13. FAMOTIDINE [Concomitant]
     Indication: PROPHYLAXIS AGAINST GASTROINTESTINAL ULCER
     Dates: start: 20100903, end: 20100905

REACTIONS (2)
  - MALLORY-WEISS SYNDROME [None]
  - VOMITING [None]
